FAERS Safety Report 20943088 (Version 1)
Quarter: 2022Q2

REPORT INFORMATION
  Report Type: Spontaneous
  Country: US (occurrence: None)
  Receive Date: 20220609
  Receipt Date: 20220609
  Transmission Date: 20220720
  Serious: Yes (Hospitalization)
  Sender: FDA-Public Use
  Company Number: None

PATIENT
  Sex: Male

DRUGS (2)
  1. TEMOZOLOMIDE [Suspect]
     Active Substance: TEMOZOLOMIDE
     Indication: Diffuse large B-cell lymphoma
     Dosage: 200 MG ONCE DAILY FOR 5 DAYS ORAL?
     Route: 048
     Dates: start: 202204
  2. TEMOZOLOMIDE [Suspect]
     Active Substance: TEMOZOLOMIDE
     Indication: Diffuse large B-cell lymphoma
     Dosage: 140MG ONCE DAILY FOR 5 DAYS ORAL
     Route: 048
     Dates: start: 202204

REACTIONS (2)
  - Mental status changes [None]
  - Memory impairment [None]
